FAERS Safety Report 7379082-3 (Version None)
Quarter: 2011Q1

REPORT INFORMATION
  Report Type: 
  Country: None (occurrence: None)
  Receive Date: 20110328
  Receipt Date: 20110323
  Transmission Date: 20110831
  Serious: Yes (Death, Other)
  Sender: FDA-Public Use
  Company Number: JP-CEPHALON-2011001206

PATIENT
  Age: 72 Year
  Sex: Female

DRUGS (8)
  1. PRIMPERAN TAB [Concomitant]
     Dates: start: 20110206, end: 20110227
  2. POTASSIUM CHLORIDE [Concomitant]
     Dates: start: 20110206, end: 20110227
  3. RITUXIMAB [Concomitant]
     Indication: DIFFUSE LARGE B-CELL LYMPHOMA
     Dates: start: 20110223, end: 20110223
  4. BENDAMUSTINE HCL [Suspect]
     Indication: DIFFUSE LARGE B-CELL LYMPHOMA
     Route: 042
     Dates: start: 20110224, end: 20110225
  5. BIOFERMIN [Concomitant]
     Dates: start: 20110120, end: 20110225
  6. NEO-MINOPHAGEN C [Concomitant]
     Dates: start: 20110206, end: 20110307
  7. FRAGMIN [Concomitant]
     Dates: start: 20110206, end: 20110307
  8. BARACLUDE [Concomitant]
     Dates: start: 20091111, end: 20110225

REACTIONS (3)
  - CEREBRAL HAEMORRHAGE [None]
  - BACTERIAL SEPSIS [None]
  - FUNGAL SEPSIS [None]
